FAERS Safety Report 21992669 (Version 1)
Quarter: 2023Q1

REPORT INFORMATION
  Report Type: Spontaneous
  Country: BE (occurrence: BE)
  Receive Date: 20230215
  Receipt Date: 20230215
  Transmission Date: 20230417
  Serious: Yes (Other)
  Sender: FDA-Public Use
  Company Number: BE-SUN PHARMACEUTICAL INDUSTRIES LTD-2020R1-254057

PATIENT
  Age: 67 Year
  Sex: Male

DRUGS (1)
  1. LITHIUM [Suspect]
     Active Substance: LITHIUM
     Indication: COVID-19 immunisation
     Dosage: 750 MILLIGRAM, DAILY
     Route: 065

REACTIONS (6)
  - Toxicity to various agents [Unknown]
  - Accidental overdose [Unknown]
  - Bradyphrenia [Unknown]
  - Aphasia [Unknown]
  - Emotional disorder [Unknown]
  - Muscle rigidity [Unknown]
